FAERS Safety Report 9219069 (Version 2)
Quarter: 2014Q2

REPORT INFORMATION
  Report Type: Report from Study
  Country: FR (occurrence: FR)
  Receive Date: 20130409
  Receipt Date: 20140630
  Transmission Date: 20141212
  Serious: Yes (Disabling, Other)
  Sender: FDA-Public Use
  Company Number: PHHY2013FR034111

PATIENT
  Age: 13 Year
  Sex: Female
  Weight: 42.2 kg

DRUGS (5)
  1. ILARIS [Suspect]
     Indication: CHRONIC INFANTILE NEUROLOGICAL CUTANEOUS AND ARTICULAR SYNDROME
     Dosage: 150 MG, EVERY 7 WEEKS
     Route: 058
     Dates: start: 20101215
  2. ILARIS [Suspect]
     Dosage: 150 MG, QW4
     Route: 058
     Dates: start: 20110430
  3. ILARIS [Suspect]
     Dosage: 150 MG, QW5
     Route: 058
     Dates: start: 201203
  4. ILARIS [Suspect]
     Dosage: 300 MG, QW5
     Route: 058
     Dates: start: 201203
  5. ILARIS [Suspect]
     Dosage: 150 MG, QW2
     Route: 058

REACTIONS (3)
  - Deafness unilateral [Not Recovered/Not Resolved]
  - Condition aggravated [Not Recovered/Not Resolved]
  - Drug ineffective [Unknown]
